FAERS Safety Report 18368715 (Version 1)
Quarter: 2020Q4

REPORT INFORMATION
  Report Type: Spontaneous
  Country: DE (occurrence: DE)
  Receive Date: 20201010
  Receipt Date: 20201010
  Transmission Date: 20210114
  Serious: Yes (Other)
  Sender: FDA-Public Use
  Company Number: DE-LUPIN PHARMACEUTICALS INC.-2020-07009

PATIENT
  Age: 59 Year
  Sex: Male

DRUGS (5)
  1. CLADRIBINE. [Concomitant]
     Active Substance: CLADRIBINE
     Indication: MULTIPLE SCLEROSIS
     Dosage: 90 MILLIGRAM
     Route: 065
     Dates: start: 20200310
  2. PIPERACILLIN/TAZOBACTAM [Concomitant]
     Active Substance: PIPERACILLIN SODIUM\TAZOBACTAM SODIUM
     Indication: SUPERINFECTION BACTERIAL
     Dosage: UNK
     Route: 065
     Dates: start: 2020
  3. AMPICILLIN/SULBACTAM [Concomitant]
     Active Substance: AMPICILLIN SODIUM\SULBACTAM SODIUM
     Indication: SUPERINFECTION BACTERIAL
     Dosage: UNK
     Route: 065
     Dates: start: 2020
  4. AVIPTADIL. [Concomitant]
     Active Substance: AVIPTADIL
     Indication: DRUG THERAPY
     Dosage: UNK
     Route: 065
     Dates: start: 2020
  5. HYDROXYCHLOROQUINE SULFATE. [Suspect]
     Active Substance: HYDROXYCHLOROQUINE SULFATE
     Indication: COVID-19 PNEUMONIA
     Dosage: UNK
     Route: 065
     Dates: start: 2020

REACTIONS (1)
  - Off label use [Unknown]

NARRATIVE: CASE EVENT DATE: 2020
